FAERS Safety Report 7335009-1 (Version None)
Quarter: 2011Q1

REPORT INFORMATION
  Report Type: 
  Country: None (occurrence: None)
  Receive Date: 20110307
  Receipt Date: 20110301
  Transmission Date: 20110831
  Serious: Yes (Other)
  Sender: FDA-Public Use
  Company Number: CN-GENZYME-FLUD-1000744

PATIENT

DRUGS (5)
  1. MYCOPHENOLATE MOFETIL [Concomitant]
     Indication: PROPHYLAXIS AGAINST GRAFT VERSUS HOST DISEASE
     Route: 065
  2. FLUDARA [Suspect]
     Indication: STEM CELL TRANSPLANT
     Dosage: 50 MG
     Route: 042
  3. METHOTREXATE [Concomitant]
     Indication: PROPHYLAXIS AGAINST GRAFT VERSUS HOST DISEASE
     Route: 065
  4. CYCLOSPORINE [Concomitant]
     Indication: PROPHYLAXIS AGAINST GRAFT VERSUS HOST DISEASE
     Route: 065
  5. METHYL CCNU [Suspect]
     Indication: STEM CELL TRANSPLANT
     Dosage: 250 MG/M2, ONCE, ON DAY -3
     Route: 048

REACTIONS (14)
  - GASTROINTESTINAL TOXICITY [None]
  - CARDIOTOXICITY [None]
  - LUNG INFECTION [None]
  - ORAL PAIN [None]
  - INTERSTITIAL LUNG DISEASE [None]
  - CYST [None]
  - ACUTE GRAFT VERSUS HOST DISEASE [None]
  - CYTOMEGALOVIRUS TEST POSITIVE [None]
  - PYREXIA [None]
  - CHRONIC GRAFT VERSUS HOST DISEASE [None]
  - NEPHROPATHY TOXIC [None]
  - HEPATOTOXICITY [None]
  - APPENDICITIS [None]
  - MOUTH ULCERATION [None]
